FAERS Safety Report 20739114 (Version 5)
Quarter: 2022Q2

REPORT INFORMATION
  Report Type: Report from Study
  Country: US (occurrence: US)
  Receive Date: 20220422
  Receipt Date: 20220602
  Transmission Date: 20220721
  Serious: Yes (Hospitalization, Other)
  Sender: FDA-Public Use
  Company Number: US-NOVARTISTESTPH-NVSC2022US090933

PATIENT
  Age: 79 Year
  Sex: Female
  Weight: 59.9 kg

DRUGS (3)
  1. PIQRAY [Suspect]
     Active Substance: ALPELISIB
     Indication: Breast cancer
     Dosage: 300 MG, QD (TABLET)
     Route: 048
  2. PIQRAY [Suspect]
     Active Substance: ALPELISIB
     Dosage: 300 MG, Q2H
     Route: 048
  3. PIQRAY [Suspect]
     Active Substance: ALPELISIB
     Dosage: 200 MG, QD (TABLET)
     Route: 048

REACTIONS (6)
  - Diarrhoea [Recovered/Resolved with Sequelae]
  - Renal impairment [Recovering/Resolving]
  - Hyperglycaemia [Recovering/Resolving]
  - Fatigue [Recovering/Resolving]
  - Paracentesis [Not Recovered/Not Resolved]
  - Electrolyte imbalance [Unknown]

NARRATIVE: CASE EVENT DATE: 20220411
